FAERS Safety Report 7973295-5 (Version None)
Quarter: 2011Q4

REPORT INFORMATION
  Report Type: 
  Country: None (occurrence: None)
  Receive Date: 20111213
  Receipt Date: 20111205
  Transmission Date: 20120403
  Serious: Yes (Other)
  Sender: FDA-Public Use
  Company Number: PHEH2011US010618

PATIENT
  Sex: Female

DRUGS (5)
  1. NIACIN [Suspect]
     Dosage: UNK
  2. DICLOFENAC SODIUM [Suspect]
     Dosage: 75 MG DAILY
  3. SIMPONI [Suspect]
     Dosage: UNK
  4. PANTOPRAZOLE [Suspect]
     Dosage: UNK
  5. FLOSANEX [Suspect]
     Dosage: UNK

REACTIONS (4)
  - VERTIGO [None]
  - BLINDNESS [None]
  - MIDDLE EAR EFFUSION [None]
  - FEELING ABNORMAL [None]
